FAERS Safety Report 11116302 (Version 1)
Quarter: 2015Q2

REPORT INFORMATION
  Report Type: Spontaneous
  Country: BR (occurrence: BR)
  Receive Date: 20150515
  Receipt Date: 20150515
  Transmission Date: 20150821
  Serious: Yes (Other)
  Sender: FDA-Public Use
  Company Number: BR-PFIZER INC-2015163164

PATIENT
  Age: 44 Year
  Sex: Male

DRUGS (2)
  1. VIAGRA [Suspect]
     Active Substance: SILDENAFIL CITRATE
     Dosage: 400 MG, SINGLE
  2. VIAGRA [Suspect]
     Active Substance: SILDENAFIL CITRATE
     Indication: ERECTILE DYSFUNCTION
     Dosage: 150 MG, UNK

REACTIONS (7)
  - Erythema [Unknown]
  - Intentional product use issue [Unknown]
  - Visual impairment [Unknown]
  - Photopsia [Unknown]
  - Blood pressure increased [Unknown]
  - Burn oesophageal [Unknown]
  - Drug ineffective [Unknown]
